FAERS Safety Report 4403849-4 (Version None)
Quarter: 2004Q3

REPORT INFORMATION
  Report Type: 
  Country: None (occurrence: None)
  Receive Date: 20040719
  Receipt Date: 20040705
  Transmission Date: 20050211
  Serious: Yes (Hospitalization)
  Sender: FDA-Public Use
  Company Number: 04P-056-0266027-00

PATIENT
  Age: 44 Year
  Sex: Female

DRUGS (9)
  1. BIAXIN [Suspect]
     Dosage: 500 MG, 1 IN 1 D, PER ORAL
     Route: 048
     Dates: start: 20030408
  2. ANSATIPINE [Suspect]
     Dosage: SEE IMAGE
     Route: 048
     Dates: start: 20030408, end: 20040415
  3. ANSATIPINE [Suspect]
     Dosage: SEE IMAGE
     Route: 048
     Dates: start: 20040601
  4. OMEPRAZOLE [Concomitant]
  5. ETHAMBUTOL DIHYDROCHLORIDE [Concomitant]
  6. ABACAVIR SULFATE [Concomitant]
  7. LAMIVUDINE [Concomitant]
  8. EFAVIRENZ [Concomitant]
  9. FLUCONAZOLE [Concomitant]

REACTIONS (1)
  - ARTHRALGIA [None]
